FAERS Safety Report 18794098 (Version 1)
Quarter: 2021Q1

REPORT INFORMATION
  Report Type: Spontaneous
  Country: GB (occurrence: GB)
  Receive Date: 20210127
  Receipt Date: 20210127
  Transmission Date: 20210419
  Serious: Yes (Other)
  Sender: FDA-Public Use
  Company Number: GB-TEVA-2021-GB-1871478

PATIENT
  Age: 54 Year
  Sex: Female
  Weight: 71.21 kg

DRUGS (4)
  1. NAPROXENE [Concomitant]
     Active Substance: NAPROXEN
     Indication: ILL-DEFINED DISORDER
  2. OMEPRAZOL [Concomitant]
     Active Substance: OMEPRAZOLE
     Indication: ILL-DEFINED DISORDER
  3. PREDNISOLONE. [Suspect]
     Active Substance: PREDNISOLONE
     Indication: POLYMYALGIA RHEUMATICA
  4. PREDNISOLONE. [Suspect]
     Active Substance: PREDNISOLONE
     Indication: ILL-DEFINED DISORDER
     Dosage: 15 MG
     Route: 048
     Dates: start: 20201130

REACTIONS (6)
  - Adverse drug reaction [Recovered/Resolved]
  - Insomnia [Not Recovered/Not Resolved]
  - Abnormal dreams [Recovered/Resolved]
  - Confusional state [Recovered/Resolved]
  - Paranoia [Recovered/Resolved]
  - Adverse drug reaction [Recovered/Resolved]

NARRATIVE: CASE EVENT DATE: 20201201
